FAERS Safety Report 9001928 (Version 2)
Quarter: 2013Q1

REPORT INFORMATION
  Report Type: Spontaneous
  Country: FR (occurrence: FR)
  Receive Date: 20130107
  Receipt Date: 20130211
  Transmission Date: 20140127
  Serious: Yes (Other)
  Sender: FDA-Public Use
  Company Number: FR-ROCHE-1175147

PATIENT
  Age: 62 Year
  Sex: Male

DRUGS (12)
  1. MIRCERA [Suspect]
     Indication: ANAEMIA
     Route: 042
     Dates: start: 20111228, end: 20121006
  2. NEORECORMON [Concomitant]
  3. CARDENSIEL [Concomitant]
  4. COVERAM [Concomitant]
     Dosage: 10/10 MG
     Route: 065
  5. HYPERIUM [Concomitant]
     Route: 065
  6. SEROPLEX [Concomitant]
     Route: 065
  7. IMOVANE [Concomitant]
  8. EMLA [Concomitant]
  9. TAHOR [Concomitant]
     Route: 065
  10. UVEDOSE [Concomitant]
     Dosage: 1 AMPOUL
     Route: 065
  11. RENVELA [Concomitant]
  12. KAYEXALATE [Concomitant]

REACTIONS (1)
  - Purpura [Not Recovered/Not Resolved]
